FAERS Safety Report 9337308 (Version 1)
Quarter: 2013Q2

REPORT INFORMATION
  Report Type: Report from Study
  Country: NL (occurrence: NL)
  Receive Date: 20130607
  Receipt Date: 20130607
  Transmission Date: 20140414
  Serious: Yes (Other)
  Sender: FDA-Public Use
  Company Number: NL-ABBOTT-13P-114-1094434-00

PATIENT
  Age: 68 Year
  Sex: Male
  Weight: 95 kg

DRUGS (6)
  1. HUMIRA [Suspect]
     Indication: PSORIASIS
     Route: 058
     Dates: start: 20090409, end: 20090409
  2. HUMIRA [Suspect]
     Route: 058
     Dates: start: 200904, end: 20130506
  3. METFORMINE [Concomitant]
     Indication: DIABETES MELLITUS
     Dates: start: 1990
  4. GLIMEPIRIDE [Concomitant]
     Indication: DIABETES MELLITUS
  5. PERINDOPRIL [Concomitant]
     Indication: HYPERTENSION
  6. CARBASALAATCALCIUM [Concomitant]
     Indication: HYPERTENSION

REACTIONS (2)
  - Transient ischaemic attack [Recovered/Resolved]
  - Muscular weakness [Recovered/Resolved]
